FAERS Safety Report 7331791-8 (Version None)
Quarter: 2011Q1

REPORT INFORMATION
  Report Type: 
  Country: None (occurrence: None)
  Receive Date: 20110304
  Receipt Date: 20090811
  Transmission Date: 20110831
  Serious: Yes (Hospitalization, Other)
  Sender: FDA-Public Use
  Company Number: US-PFIZER INC-2008067694

PATIENT
  Sex: Female

DRUGS (11)
  1. NORVASC [Concomitant]
     Dosage: 10 MG, 1X/DAY
  2. FERROUS SULFATE [Concomitant]
     Dosage: UNK
  3. PHOSLO [Concomitant]
     Dosage: 667 MG, 3X/DAY
  4. SODIUM BICARBONATE [Concomitant]
     Dosage: 650 MG, 1X/DAY
  5. METOPROLOL [Concomitant]
     Dosage: 100 MG, 2X/DAY
  6. DILANTIN [Suspect]
     Dosage: 100 MG, ONCE IN EIGHT HOURS
     Route: 042
     Dates: start: 20040626
  7. CATAPRES-TTS-1 [Concomitant]
     Dosage: UNK
  8. DILANTIN [Suspect]
     Indication: CONVULSION
     Dosage: 300 MG, 1X/DAY
     Route: 048
     Dates: start: 20040702, end: 20040802
  9. PHENYTOIN [Suspect]
  10. ACETAMINOPHEN [Concomitant]
     Dosage: UNK
  11. FUROSEMIDE [Concomitant]
     Dosage: 80 MG, 1X/DAY

REACTIONS (1)
  - STEVENS-JOHNSON SYNDROME [None]
